FAERS Safety Report 13505433 (Version 2)
Quarter: 2017Q2

REPORT INFORMATION
  Report Type: Spontaneous
  Country: JP (occurrence: JP)
  Receive Date: 20170502
  Receipt Date: 20170615
  Transmission Date: 20170830
  Serious: Yes (Death)
  Sender: FDA-Public Use
  Company Number: PHJP2017JP014912

PATIENT
  Age: 40 Year
  Sex: Female

DRUGS (1)
  1. VOTRIENT [Suspect]
     Active Substance: PAZOPANIB HYDROCHLORIDE
     Indication: METASTATIC RENAL CELL CARCINOMA
     Dosage: UNK
     Route: 048

REACTIONS (4)
  - Malignant neoplasm progression [Fatal]
  - Hepatic function abnormal [Unknown]
  - Metastatic renal cell carcinoma [Fatal]
  - Thyroid disorder [Unknown]
